FAERS Safety Report 24612947 (Version 1)
Quarter: 2024Q4

REPORT INFORMATION
  Report Type: Spontaneous
  Country: US (occurrence: None)
  Receive Date: 20241112
  Receipt Date: 20241112
  Transmission Date: 20250114
  Serious: Yes (Other)
  Sender: Public
  Company Number: None

PATIENT
  Age: 66 Year
  Sex: Female

DRUGS (1)
  1. AMBRISENTAN [Suspect]
     Active Substance: AMBRISENTAN
     Indication: Pulmonary hypertension
     Dosage: FREQUENCY : DAILY;?
     Route: 048

REACTIONS (8)
  - Fluid retention [None]
  - Eye swelling [None]
  - Peripheral swelling [None]
  - Peripheral swelling [None]
  - Joint swelling [None]
  - Movement disorder [None]
  - Gait disturbance [None]
  - Therapy cessation [None]
